FAERS Safety Report 4474562-2 (Version None)
Quarter: 2004Q4

REPORT INFORMATION
  Report Type: 
  Country: None (occurrence: None)
  Receive Date: 20041012
  Receipt Date: 20040929
  Transmission Date: 20050328
  Serious: Yes (Death, Other)
  Sender: FDA-Public Use
  Company Number: JP-2004-031877

PATIENT
  Age: 37 Year
  Sex: Male
  Weight: 78.3 kg

DRUGS (5)
  1. BETAFERON(INTERFERON BETA - 1B) INJECTION, 250UG [Suspect]
     Indication: MULTIPLE SCLEROSIS
     Dosage: 8 MIU, EVERY 2D, SUBCUTANEOUS
     Route: 058
     Dates: start: 20030217, end: 20040903
  2. PREDONINE [Concomitant]
  3. ZANTAC [Concomitant]
  4. MOBIC [Concomitant]
  5. BENET(RISEDRONATE SODIUM) [Concomitant]

REACTIONS (8)
  - ATRIAL FIBRILLATION [None]
  - DEEP VEIN THROMBOSIS [None]
  - HYPERTENSION [None]
  - INJECTION SITE ERYTHEMA [None]
  - MULTIPLE SCLEROSIS RELAPSE [None]
  - PULMONARY EMBOLISM [None]
  - PYREXIA [None]
  - RESPIRATORY ARREST [None]
